FAERS Safety Report 9652794 (Version 1)
Quarter: 2013Q4

REPORT INFORMATION
  Report Type: Spontaneous
  Country: US (occurrence: US)
  Receive Date: 20131029
  Receipt Date: 20131029
  Transmission Date: 20140711
  Serious: No
  Sender: FDA-Public Use
  Company Number: US-BIOGENIDEC-2013BI077402

PATIENT
  Sex: Female

DRUGS (14)
  1. TECFIDERA [Suspect]
     Indication: MULTIPLE SCLEROSIS
     Route: 048
     Dates: start: 20130717
  2. MAXALT [Concomitant]
  3. LASIX [Concomitant]
  4. ENALAPRIL [Concomitant]
  5. TRAMADOL [Concomitant]
  6. CELEXA [Concomitant]
  7. ASPIRIN [Concomitant]
  8. LORTAB [Concomitant]
  9. BACLOFEN [Concomitant]
  10. RANITIDINE [Concomitant]
  11. METOPROLOL [Concomitant]
  12. TEMAZEPAM [Concomitant]
  13. AMPYRA [Concomitant]
  14. ALEVE [Concomitant]

REACTIONS (1)
  - Tremor [Unknown]
